FAERS Safety Report 7157887-1 (Version None)
Quarter: 2010Q4

REPORT INFORMATION
  Report Type: 
  Country: None (occurrence: None)
  Receive Date: 20101214
  Receipt Date: 20101206
  Transmission Date: 20110411
  Serious: Yes (Other)
  Sender: FDA-Public Use
  Company Number: DE-PFIZER INC-2010164843

PATIENT
  Age: 71 Year
  Sex: Female

DRUGS (1)
  1. LYRICA [Suspect]
     Indication: GENERALISED ANXIETY DISORDER
     Dosage: 325 MG, UNK
     Dates: start: 20100201

REACTIONS (3)
  - GLAUCOMA [None]
  - VISION BLURRED [None]
  - VISUAL ACUITY REDUCED [None]
